FAERS Safety Report 19173179 (Version 1)
Quarter: 2021Q2

REPORT INFORMATION
  Report Type: Spontaneous
  Country: US (occurrence: US)
  Receive Date: 20210422
  Receipt Date: 20210422
  Transmission Date: 20210717
  Serious: Yes (Death)
  Sender: FDA-Public Use
  Company Number: None

PATIENT
  Age: 81 Year
  Sex: Female
  Weight: 71.67 kg

DRUGS (15)
  1. MIRTAZAPINE. [Concomitant]
     Active Substance: MIRTAZAPINE
  2. ONDANSETRON [Concomitant]
     Active Substance: ONDANSETRON
  3. PRAVASTATIN. [Concomitant]
     Active Substance: PRAVASTATIN
  4. KETOROLAC TROMETHAMINE OPHTHALMIC [Concomitant]
  5. METOPROLOL TARTRATE. [Concomitant]
     Active Substance: METOPROLOL TARTRATE
  6. VITAMIN D [Concomitant]
     Active Substance: VITAMIN D NOS
  7. AZITHROMYCIN ANHYDROUS. [Concomitant]
     Active Substance: AZITHROMYCIN ANHYDROUS
  8. LACTULOSE. [Concomitant]
     Active Substance: LACTULOSE
  9. NEXIUM [Concomitant]
     Active Substance: ESOMEPRAZOLE MAGNESIUM
  10. XELODA [Concomitant]
     Active Substance: CAPECITABINE
  11. HERCEPTIN [Concomitant]
     Active Substance: TRASTUZUMAB
  12. LIDOCAINE?PRILOCAINE [Concomitant]
     Active Substance: LIDOCAINE\PRILOCAINE
  13. VOLTAREN [Concomitant]
     Active Substance: DICLOFENAC SODIUM
  14. PIQRAY [Suspect]
     Active Substance: ALPELISIB
     Indication: BREAST CANCER FEMALE
     Route: 048
     Dates: start: 20210205, end: 20210422
  15. OLOPATADINE. [Concomitant]
     Active Substance: OLOPATADINE

REACTIONS (1)
  - Death [None]

NARRATIVE: CASE EVENT DATE: 20210422
